FAERS Safety Report 4848545-4 (Version None)
Quarter: 2005Q4

REPORT INFORMATION
  Report Type: 
  Country: None (occurrence: None)
  Receive Date: 20051206
  Receipt Date: 20051123
  Transmission Date: 20060501
  Serious: Yes (Other)
  Sender: FDA-Public Use
  Company Number: 2005157832

PATIENT
  Age: 61 Year
  Sex: Female
  Weight: 86.1834 kg

DRUGS (6)
  1. LYRICA [Suspect]
     Indication: BACK PAIN
     Dosage: 50 MG (25 MG, 2 IN 1 D), ORAL
     Route: 048
     Dates: start: 20051001, end: 20050101
  2. LAMICTAL [Concomitant]
  3. EFEXOR XR (VENLAFAXINE) [Concomitant]
  4. PROCARDIA [Concomitant]
  5. ABILIFY [Concomitant]
  6. VYTORIN [Concomitant]

REACTIONS (5)
  - ARTHRALGIA [None]
  - INCREASED APPETITE [None]
  - JOINT SWELLING [None]
  - PARALYSIS [None]
  - WEIGHT INCREASED [None]
